FAERS Safety Report 7186012-6 (Version None)
Quarter: 2010Q4

REPORT INFORMATION
  Report Type: 
  Country: None (occurrence: None)
  Receive Date: 20101222
  Receipt Date: 20101210
  Transmission Date: 20110411
  Serious: Yes (Hospitalization)
  Sender: FDA-Public Use
  Company Number: GB-PFIZER INC-2010147757

PATIENT
  Age: 59 Year
  Sex: Male
  Weight: 161.8 kg

DRUGS (12)
  1. PREGABALIN [Suspect]
     Indication: DIABETIC NEUROPATHY
     Dosage: UNK
     Route: 048
     Dates: start: 20100629
  2. METFORMIN [Concomitant]
     Dosage: UNK
     Dates: start: 19980715
  3. PIOGLITAZONE [Concomitant]
     Indication: DIABETES MELLITUS
     Dosage: UNK
  4. ACETYLSALICYLIC ACID [Concomitant]
     Indication: PROPHYLAXIS
     Dosage: UNK
     Dates: start: 19981126
  5. DOXAZOSIN [Concomitant]
     Indication: HYPERTENSION
     Dosage: UNK
     Dates: start: 19991111
  6. LISINOPRIL [Concomitant]
     Indication: HYPERTENSION
     Dosage: UNK
     Dates: start: 20030120
  7. FUROSEMIDE [Concomitant]
     Indication: HYPERTENSION
     Dosage: UNK
  8. SIMVASTATIN [Concomitant]
     Indication: HYPERCHOLESTEROLAEMIA
     Dosage: UNK
     Dates: start: 20060814
  9. OMEPRAZOLE [Concomitant]
     Indication: ACID BASE BALANCE
     Dosage: UNK
     Dates: start: 20051016
  10. ALLOPURINOL [Concomitant]
     Indication: GOUT
     Dosage: UNK
     Dates: start: 19920323
  11. LANTUS [Concomitant]
     Indication: DIABETES MELLITUS
     Dosage: UNK
     Dates: start: 20030918
  12. CORAMIL [Concomitant]
     Indication: HYPERTENSION
     Dosage: UNK
     Dates: start: 20060525

REACTIONS (1)
  - CELLULITIS [None]
